FAERS Safety Report 5169439-3 (Version None)
Quarter: 2006Q4

REPORT INFORMATION
  Report Type: 
  Country: None (occurrence: None)
  Receive Date: 20061201
  Receipt Date: 20061120
  Transmission Date: 20070319
  Serious: Yes (Other)
  Sender: FDA-Public Use
  Company Number: 2006145169

PATIENT
  Age: 45 Year
  Sex: Female
  Weight: 80 kg

DRUGS (4)
  1. SOLU-MEDRONE (METHYLPREDNISOLONE SODIUM SUCCINATE) [Suspect]
     Indication: RHEUMATOID ARTHRITIS
     Dosage: (500 MG), INTRAVENOUS
     Route: 042
     Dates: start: 20061013, end: 20061013
  2. CO-PROXAMOL (DEXTROPROPOXYPHENE HYDROCHLORIDE, PARACETAMOL) [Concomitant]
  3. LEFLUNOMIDE [Concomitant]
  4. ERYTHROMYCIN [Concomitant]

REACTIONS (4)
  - DRUG HYPERSENSITIVITY [None]
  - HOT FLUSH [None]
  - OEDEMA PERIPHERAL [None]
  - WHEEZING [None]
